FAERS Safety Report 4501051-9 (Version None)
Quarter: 2004Q4

REPORT INFORMATION
  Report Type: 
  Country: None (occurrence: None)
  Receive Date: 20041115
  Receipt Date: 20041105
  Transmission Date: 20050328
  Serious: Yes (Hospitalization)
  Sender: FDA-Public Use
  Company Number: US-BRISTOL-MYERS SQUIBB COMPANY-12762589

PATIENT
  Age: 57 Year
  Sex: Male

DRUGS (7)
  1. SERZONE [Suspect]
     Indication: DEPRESSION
     Dates: start: 20000701, end: 20020201
  2. HUMIBID L.A. [Concomitant]
  3. ALUPENT INHALER [Concomitant]
     Dosage: NUMBER OF DOSAGES: EVERY 4 TO 6 HOURS
  4. THEOPHYLLINE [Concomitant]
  5. LASIX [Concomitant]
  6. POTASSIUM CHLORIDE [Concomitant]
  7. AUGMENTIN '125' [Concomitant]

REACTIONS (3)
  - CHRONIC OBSTRUCTIVE AIRWAYS DISEASE [None]
  - LIVER FUNCTION TEST ABNORMAL [None]
  - RESPIRATORY FAILURE [None]
